FAERS Safety Report 7436036-6 (Version None)
Quarter: 2011Q2

REPORT INFORMATION
  Report Type: 
  Country: None (occurrence: None)
  Receive Date: 20110425
  Receipt Date: 20090112
  Transmission Date: 20111010
  Serious: Yes (Death, Hospitalization, Other)
  Sender: FDA-Public Use
  Company Number: US-BAYER-200910290NA

PATIENT
  Age: 66 Year
  Sex: Male
  Weight: 87.528 kg

DRUGS (13)
  1. NITROGLYCERIN [Concomitant]
     Route: 042
  2. RED BLOOD CELLS [Concomitant]
     Dosage: MULTIPLE UNITS
     Route: 042
     Dates: start: 19980521
  3. CORTICOSTEROIDS [Concomitant]
     Indication: ASTHMA
     Route: 048
  4. CORTICOSTEROIDS [Concomitant]
     Indication: CHRONIC OBSTRUCTIVE PULMONARY DISEASE
  5. BIAXIN [Concomitant]
     Indication: PNEUMONIA
     Route: 048
  6. HEPARIN [Concomitant]
     Dosage: 1000 U, UNK
     Route: 042
     Dates: start: 19980521
  7. HEPARIN [Concomitant]
     Dosage: 20000 U, UNK
     Dates: start: 19980521
  8. FRESH FROZEN PLASMA [Concomitant]
     Dosage: MULTIPLE UNITS
     Route: 042
  9. CEFAZOLIN [Concomitant]
     Dosage: 1 G, UNK
     Route: 042
     Dates: start: 19980521
  10. VANCOMYCIN [Concomitant]
     Dosage: 1 G, UNK
     Route: 042
     Dates: start: 19980521
  11. AMICAR [Concomitant]
     Indication: CORONARY ARTERY BYPASS
     Dosage: 250 MG/ML, UNK
     Route: 042
     Dates: start: 19980521
  12. TRASYLOL [Suspect]
     Indication: INTRA-AORTIC BALLOON PLACEMENT
     Dosage: AT 25CC
     Route: 042
     Dates: start: 19980522
  13. CARDIZEM [Concomitant]
     Route: 042

REACTIONS (12)
  - DEATH [None]
  - EMOTIONAL DISTRESS [None]
  - UNEVALUABLE EVENT [None]
  - ANXIETY [None]
  - PAIN [None]
  - RENAL IMPAIRMENT [None]
  - INJURY [None]
  - FEAR [None]
  - ANHEDONIA [None]
  - RENAL FAILURE [None]
  - RENAL INJURY [None]
  - STRESS [None]
